FAERS Safety Report 24583508 (Version 3)
Quarter: 2024Q4

REPORT INFORMATION
  Report Type: Spontaneous
  Country: US (occurrence: US)
  Receive Date: 20241106
  Receipt Date: 20241106
  Transmission Date: 20250114
  Serious: Yes (Hospitalization)
  Sender: STRIDES
  Company Number: US-STRIDES ARCOLAB LIMITED-2024SP014175

PATIENT

DRUGS (5)
  1. PREDNISOLONE [Suspect]
     Active Substance: PREDNISOLONE
     Indication: Back pain
     Dosage: UNK
     Route: 065
  2. PREDNISOLONE [Suspect]
     Active Substance: PREDNISOLONE
     Dosage: 50 MILLIGRAM, QD
     Route: 065
  3. PREDNISOLONE [Suspect]
     Active Substance: PREDNISOLONE
     Dosage: UNK, DOSE DECREASED
     Route: 065
  4. METHYLPREDNISOLONE [Suspect]
     Active Substance: METHYLPREDNISOLONE
     Indication: Back pain
     Dosage: UNK
     Route: 065
  5. METHYLPREDNISOLONE [Suspect]
     Active Substance: METHYLPREDNISOLONE
     Dosage: UNK, DOSE DECREASED
     Route: 065

REACTIONS (11)
  - Leukocytosis [Unknown]
  - Blood lactic acid increased [Unknown]
  - Glycosuria [Unknown]
  - Central obesity [Unknown]
  - Intentional product misuse [Unknown]
  - Osteonecrosis [Unknown]
  - Steroid dependence [Unknown]
  - Steroid withdrawal syndrome [Unknown]
  - Cushingoid [Unknown]
  - Pathological fracture [Unknown]
  - Hyperglycaemia [Unknown]
